FAERS Safety Report 8158620-7 (Version None)
Quarter: 2012Q1

REPORT INFORMATION
  Report Type: 
  Country: None (occurrence: None)
  Receive Date: 20120217
  Receipt Date: 20120206
  Transmission Date: 20120608
  Serious: Yes (Hospitalization)
  Sender: FDA-Public Use
  Company Number: DSU-2012-00947

PATIENT
  Age: 83 Year
  Sex: Male
  Weight: 70.3075 kg

DRUGS (5)
  1. COUMADIN [Concomitant]
  2. UNSPECIFIED BLOOD PRESSURE MEDICATIONS (ANTIHYPERTENSIVES) [Concomitant]
  3. FLONASE (FLUTICASONE PROPIONATE) (FLUTICASONE PROPIONATE) [Concomitant]
  4. WELCHOL [Suspect]
     Indication: HYPERCHOLESTEROLAEMIA
     Dosage: 3750 MG (625 MG, 3 TABLETS BID), PER ORAL
     Route: 048
     Dates: start: 20100511, end: 20120101
  5. ADVAIR (FLUTICASONE PROPIONATE, SALMETEROL XINAFOATE) (FLUTICASONE PRO [Concomitant]

REACTIONS (4)
  - WEIGHT DECREASED [None]
  - UPPER RESPIRATORY TRACT CONGESTION [None]
  - CONSTIPATION [None]
  - WRONG TECHNIQUE IN DRUG USAGE PROCESS [None]
